FAERS Safety Report 11725483 (Version 1)
Quarter: 2015Q4

REPORT INFORMATION
  Report Type: Spontaneous
  Country: US (occurrence: US)
  Receive Date: 20151110
  Receipt Date: 20151110
  Transmission Date: 20160304
  Serious: No
  Sender: FDA-Public Use
  Company Number: US-ELI_LILLY_AND_COMPANY-US201109004861

PATIENT
  Age: 37 Year
  Sex: Female

DRUGS (2)
  1. FORTEO [Suspect]
     Active Substance: TERIPARATIDE
     Indication: OSTEOPOROSIS
     Dosage: 20 UG, QD
     Dates: start: 20110906
  2. FORTEO [Suspect]
     Active Substance: TERIPARATIDE
     Dosage: 20 UG, QD

REACTIONS (8)
  - Abdominal discomfort [Unknown]
  - Sleep disorder due to a general medical condition [Unknown]
  - Abdominal pain upper [Unknown]
  - Haemorrhage [Unknown]
  - Decreased appetite [Unknown]
  - Dyspepsia [Unknown]
  - Dysgeusia [Unknown]
  - Pain [Unknown]

NARRATIVE: CASE EVENT DATE: 201109
